FAERS Safety Report 23873970 (Version 1)
Quarter: 2024Q2

REPORT INFORMATION
  Report Type: Report from Study
  Country: FR (occurrence: FR)
  Receive Date: 20240520
  Receipt Date: 20240520
  Transmission Date: 20240715
  Serious: Yes (Death, Hospitalization)
  Sender: FDA-Public Use
  Company Number: FR-Stemline Therapeutics, Inc.-2024ST003004

PATIENT
  Sex: Female

DRUGS (2)
  1. ORSERDU [Suspect]
     Active Substance: ELACESTRANT
     Indication: Breast cancer
     Dosage: 345 MG PER DAY
     Route: 048
     Dates: start: 202311
  2. ORSERDU [Suspect]
     Active Substance: ELACESTRANT
     Dosage: 200 MG PER DAY
     Route: 048

REACTIONS (3)
  - Death [Fatal]
  - Drug intolerance [Unknown]
  - Vomiting [Unknown]
